FAERS Safety Report 7668657-X (Version None)
Quarter: 2011Q3

REPORT INFORMATION
  Report Type: 
  Country: None (occurrence: None)
  Receive Date: 20110808
  Receipt Date: 20110728
  Transmission Date: 20111222
  Serious: Yes (Death, Other)
  Sender: FDA-Public Use
  Company Number: US-BAYER-201012035NA

PATIENT
  Age: 84 Year
  Sex: Female
  Weight: 76.599 kg

DRUGS (16)
  1. ATENOLOL [Concomitant]
     Dosage: 100 MG, UNK
     Route: 048
     Dates: start: 20040108
  2. HYDROCHLOROTHIAZIDE [Concomitant]
     Dosage: 50 MG, UNK
     Dates: start: 20040524
  3. CEFUROXIME [Concomitant]
     Dosage: 1.5 G, UNK
     Route: 042
     Dates: start: 20040712
  4. SODIUM NITROPRUSSIDE [Concomitant]
     Dosage: UNK
     Route: 042
     Dates: start: 20040712
  5. HEPARIN [Concomitant]
     Dosage: 3000 U, UNK
     Route: 042
     Dates: start: 20040712
  6. CRESTOR [Concomitant]
     Dosage: 10 MG, UNK
     Route: 048
  7. TRASYLOL [Suspect]
     Indication: CORONARY ARTERY BYPASS
     Dosage: 1 ML, TEST DOSE
     Dates: start: 20040712, end: 20040712
  8. BENICAR [Concomitant]
     Dosage: 20 MG, UNK
     Route: 048
     Dates: start: 20040705
  9. PROTAMINE [Concomitant]
     Dosage: 250 MG, UNK
     Dates: start: 20040712
  10. ENALAPRIL MALEATE [Concomitant]
     Dosage: 5 MG, UNK
     Route: 048
  11. NITROGLYCERIN [Concomitant]
     Dosage: UNK
     Route: 042
     Dates: start: 20040712
  12. CEFUROXIME [Concomitant]
     Dosage: 750 MG, UNK
     Route: 042
     Dates: start: 20040712
  13. TRASYLOL [Suspect]
     Indication: MITRAL VALVE REPAIR
     Dosage: UNK
     Dates: start: 20040712, end: 20040712
  14. LISINOPRIL [Concomitant]
     Dosage: 10 MG, UNK
     Route: 048
  15. METOPROLOL TARTRATE [Concomitant]
     Dosage: 100 MG, UNK
  16. DOPAMINE HCL [Concomitant]
     Dosage: UNK
     Route: 042
     Dates: start: 20040712

REACTIONS (13)
  - RENAL FAILURE [None]
  - FEAR [None]
  - PAIN [None]
  - DEATH [None]
  - CEREBROVASCULAR ACCIDENT [None]
  - MULTI-ORGAN FAILURE [None]
  - EMOTIONAL DISTRESS [None]
  - UNEVALUABLE EVENT [None]
  - RENAL INJURY [None]
  - ANXIETY [None]
  - INJURY [None]
  - RENAL IMPAIRMENT [None]
  - STRESS [None]
